FAERS Safety Report 5318613-1 (Version None)
Quarter: 2007Q1

REPORT INFORMATION
  Report Type: 
  Country: None (occurrence: None)
  Receive Date: 20070130
  Receipt Date: 20061020
  Transmission Date: 20070707
  Serious: No
  Sender: FDA-Public Use
  Company Number: 200618800US

PATIENT
  Sex: Female

DRUGS (3)
  1. KETEK [Suspect]
     Dosage: PO
     Route: 048
  2. HYDROCHLOROTHIAZIDE [Concomitant]
  3. POTASSIUM ACETATE [Concomitant]

REACTIONS (1)
  - OLIGURIA [None]
